FAERS Safety Report 4335128-8 (Version None)
Quarter: 2004Q1

REPORT INFORMATION
  Report Type: 
  Country: None (occurrence: None)
  Receive Date: 20040329
  Receipt Date: 20040128
  Transmission Date: 20041129
  Serious: No
  Sender: FDA-Public Use
  Company Number: 04P-163-0248776-00

PATIENT
  Age: 41 Year
  Sex: Female
  Weight: 128.368 kg

DRUGS (14)
  1. HUMIRA [Suspect]
     Indication: RHEUMATOID ARTHRITIS
     Dosage: 40 MG, 1 IN 2 WK, SUBCUTANEOUS
     Route: 058
     Dates: start: 20031201
  2. AZATHIOPRINE [Concomitant]
  3. FUROSEMIDE [Concomitant]
  4. PREDNISONE [Concomitant]
  5. ERGOCALCIFEROL [Concomitant]
  6. BACTRIM [Concomitant]
  7. AMITRIPTYLINE HYDROCHLORIDE [Concomitant]
  8. CYANOCOBALAMIN [Concomitant]
  9. IRBESARTAN [Concomitant]
  10. HYDROXYCHLOROQUINE PHOSPHATE [Concomitant]
  11. TRAZODONE HCL [Concomitant]
  12. ALBUTEROL SULFATE [Concomitant]
  13. IPRATROPIUM BROMIDE [Concomitant]
  14. OXYGEN [Concomitant]

REACTIONS (1)
  - BRONCHITIS [None]
